FAERS Safety Report 6707330-9 (Version None)
Quarter: 2010Q2

REPORT INFORMATION
  Report Type: 
  Country: None (occurrence: None)
  Receive Date: 20100503
  Receipt Date: 20090916
  Transmission Date: 20101027
  Serious: No
  Sender: FDA-Public Use
  Company Number: US-ASTRAZENECA-2009SE13497

PATIENT
  Sex: Male

DRUGS (1)
  1. NEXIUM [Suspect]
     Indication: DYSPHONIA
     Route: 048
     Dates: start: 20090912, end: 20090916

REACTIONS (2)
  - DYSPHONIA [None]
  - FOOD INTERACTION [None]
